FAERS Safety Report 14684727 (Version 4)
Quarter: 2019Q1

REPORT INFORMATION
  Report Type: Report from Study
  Country: US (occurrence: US)
  Receive Date: 20180327
  Receipt Date: 20190318
  Transmission Date: 20190417
  Serious: Yes (Other)
  Sender: FDA-Public Use
  Company Number: US-JAZZ-2018-US-002406

PATIENT
  Sex: Female

DRUGS (43)
  1. CALCIUM + MAGNESIUM + ZINK [Concomitant]
  2. DICYCLOVERINE [Concomitant]
     Active Substance: DICYCLOMINE HYDROCHLORIDE
  3. MELOXICAM. [Concomitant]
     Active Substance: MELOXICAM
  4. VITAMIN B COMPLEX [Concomitant]
     Active Substance: CYANOCOBALAMIN\DEXPANTHENOL\NIACINAMIDE\PYRIDOXINE HYDROCHLORIDE\RIBOFLAVIN 5^-PHOSPHATE SODIUM\THIAMINE HYDROCHLORIDE\VITAMIN B COMPLEX
  5. SALMO SALAR OIL [Concomitant]
     Active Substance: ATLANTIC SALMON OIL
  6. XYREM [Suspect]
     Active Substance: SODIUM OXYBATE
     Dosage: 3 G, BID
     Route: 048
     Dates: start: 201509, end: 201510
  7. XYREM [Suspect]
     Active Substance: SODIUM OXYBATE
     Dosage: 4.5 G, BID
     Route: 048
     Dates: start: 201510
  8. BUPROPION HCL [Concomitant]
     Active Substance: BUPROPION HYDROCHLORIDE
  9. OXYBUTYNIN CHLORIDE. [Concomitant]
     Active Substance: OXYBUTYNIN CHLORIDE
  10. SELENIUM [Concomitant]
     Active Substance: SELENIUM
  11. VITAMIN B12 [Concomitant]
     Active Substance: CYANOCOBALAMIN
  12. AMOXICILLIN. [Concomitant]
     Active Substance: AMOXICILLIN
  13. WITHANIA SOMNIFERA [Concomitant]
     Active Substance: HERBALS
  14. LATANOPROST. [Concomitant]
     Active Substance: LATANOPROST
  15. MOLYBDENUM [Concomitant]
     Active Substance: MOLYBDENUM
  16. MUCUNA PRURIENS [Concomitant]
  17. N-ACETYL-L-CYSTEINE [Concomitant]
     Active Substance: ACETYLCYSTEINE
  18. PHOSPHATIDYL SERINE [Concomitant]
     Active Substance: PHOSPHATIDYL SERINE
  19. ALBUTEROL SULFATE. [Concomitant]
     Active Substance: ALBUTEROL SULFATE
  20. ESCITALOPRAM [Concomitant]
     Active Substance: ESCITALOPRAM OXALATE
  21. SINGULAIR [Concomitant]
     Active Substance: MONTELUKAST SODIUM
  22. D-RIBOSE [Concomitant]
     Active Substance: DIETARY SUPPLEMENT
  23. SCHIZANDRA [Concomitant]
  24. MOVE FREE ULTRA [Concomitant]
  25. SUMATRIPTAN SUCCINATE. [Concomitant]
     Active Substance: SUMATRIPTAN SUCCINATE
  26. BRIMONIDINE [Concomitant]
     Active Substance: BRIMONIDINE TARTRATE
  27. RHODIOLA ROSEA [Concomitant]
     Active Substance: HERBALS
  28. RESTASIS [Concomitant]
     Active Substance: CYCLOSPORINE
  29. XYREM [Suspect]
     Active Substance: SODIUM OXYBATE
     Indication: NARCOLEPSY
     Dosage: 2.25 G, BID
     Route: 048
     Dates: start: 201508, end: 201509
  30. HGH [Concomitant]
  31. OXYBUTYNIN. [Concomitant]
     Active Substance: OXYBUTYNIN CHLORIDE
  32. DMAE [Concomitant]
  33. PHOSPHATIDYLSERINE [Concomitant]
  34. PHYTOMENADIONE [Concomitant]
     Active Substance: PHYTONADIONE
  35. NALTREXONE HCL [Concomitant]
     Active Substance: NALTREXONE HYDROCHLORIDE
  36. GLUTAMINE [Concomitant]
     Active Substance: GLUTAMINE
  37. SYMBICORT [Concomitant]
     Active Substance: BUDESONIDE\FORMOTEROL FUMARATE DIHYDRATE
  38. MODAFINIL. [Concomitant]
     Active Substance: MODAFINIL
  39. VITAMIN D3 [Concomitant]
     Active Substance: CHOLECALCIFEROL
  40. GINKGO BILOBA [Concomitant]
     Active Substance: GINKGO
  41. TOPAMAX [Concomitant]
     Active Substance: TOPIRAMATE
  42. AGARICUS BLAZEI [Concomitant]
  43. MORINGA OLEIFERA [Concomitant]

REACTIONS (5)
  - Autoimmune disorder [Not Recovered/Not Resolved]
  - Psoriatic arthropathy [Not Recovered/Not Resolved]
  - Irritable bowel syndrome [Unknown]
  - Chronic fatigue syndrome [Not Recovered/Not Resolved]
  - Ocular hyperaemia [Unknown]
